FAERS Safety Report 4629482-7 (Version None)
Quarter: 2005Q2

REPORT INFORMATION
  Report Type: 
  Country: None (occurrence: None)
  Receive Date: 20050405
  Receipt Date: 20050321
  Transmission Date: 20051028
  Serious: Yes (Hospitalization)
  Sender: FDA-Public Use
  Company Number: 2005GB00601

PATIENT
  Age: 75 Year
  Sex: Male
  Weight: 85 kg

DRUGS (4)
  1. ZOLADEX [Suspect]
     Indication: PROSTATE CANCER
     Dates: start: 20031027
  2. LIDOCAINE [Concomitant]
  3. CYPROTERONE [Concomitant]
  4. SILDENAFIL CITRATE [Concomitant]

REACTIONS (2)
  - MUSCLE HAEMORRHAGE [None]
  - PAIN [None]
